FAERS Safety Report 10242118 (Version 2)
Quarter: 2014Q2

REPORT INFORMATION
  Report Type: Spontaneous
  Country: GB (occurrence: GB)
  Receive Date: 20140617
  Receipt Date: 20140617
  Transmission Date: 20141212
  Serious: Yes (Hospitalization, Other)
  Sender: FDA-Public Use
  Company Number: ALCN2004GB001774

PATIENT
  Age: 86 Year
  Sex: Male

DRUGS (6)
  1. TIMOLOL [Suspect]
     Dosage: 1 DF, QD
     Route: 047
     Dates: end: 20041118
  2. ATENOLOL [Suspect]
     Dosage: 25 MG, QD
     Route: 048
     Dates: start: 200410, end: 20041118
  3. NIFEDIPINE [Concomitant]
     Dosage: 60 MG, QD
     Route: 048
  4. LATANOPROST [Concomitant]
     Dosage: 1 DF, QD
     Route: 047
  5. BEZAFIBRATE [Concomitant]
     Dosage: 400 MG, QD
     Route: 048
  6. IBUPROFEN [Concomitant]
     Dosage: 400 MG, QD
     Route: 048

REACTIONS (3)
  - Bradycardia [Recovered/Resolved]
  - Fall [Recovered/Resolved]
  - Confusional state [Recovered/Resolved]
